FAERS Safety Report 25361395 (Version 4)
Quarter: 2025Q3

REPORT INFORMATION
  Report Type: Report from Study
  Country: US (occurrence: US)
  Receive Date: 20250527
  Receipt Date: 20250807
  Transmission Date: 20251020
  Serious: Yes (Other)
  Sender: ACADIA PHARMACEUTICALS
  Company Number: US-ACADIA PHARMACEUTICALS INC.-ACA-2025-PIM-006145

PATIENT
  Sex: Male

DRUGS (5)
  1. NUPLAZID [Suspect]
     Active Substance: PIMAVANSERIN TARTRATE
     Indication: Parkinson^s disease psychosis
     Dosage: 34 MILLIGRAM, QD
     Route: 048
     Dates: start: 202505, end: 20250625
  2. NUPLAZID [Suspect]
     Active Substance: PIMAVANSERIN TARTRATE
     Indication: Parkinson^s disease
  3. QUETIAPINE [Suspect]
     Active Substance: QUETIAPINE
     Dosage: UNK, QD
  4. QUETIAPINE [Suspect]
     Active Substance: QUETIAPINE
  5. QUETIAPINE [Suspect]
     Active Substance: QUETIAPINE
     Dosage: UNK, BID

REACTIONS (7)
  - Hallucination [Unknown]
  - Hallucination, visual [Unknown]
  - Delusion [Unknown]
  - Disorientation [Unknown]
  - Fall [Unknown]
  - Confusional state [Unknown]
  - Peripheral swelling [Unknown]

NARRATIVE: CASE EVENT DATE: 20250101
